FAERS Safety Report 14199548 (Version 2)
Quarter: 2017Q4

REPORT INFORMATION
  Report Type: Spontaneous
  Country: JP (occurrence: JP)
  Receive Date: 20171117
  Receipt Date: 20171127
  Transmission Date: 20180321
  Serious: Yes (Hospitalization)
  Sender: FDA-Public Use
  Company Number: JP-SHIONOGI, INC-2017001205

PATIENT
  Age: 25 Year
  Sex: Male
  Weight: 47.1 kg

DRUGS (6)
  1. ENDOXAN                            /00021101/ [Suspect]
     Active Substance: CYCLOPHOSPHAMIDE
     Indication: SYNOVIAL SARCOMA
     Dosage: 1100 MG, QD
     Route: 065
     Dates: start: 20171103, end: 20171104
  2. SYMPROIC [Suspect]
     Active Substance: NALDEMEDINE
     Indication: CONSTIPATION
     Dosage: 0.2 MG, QD
     Route: 065
     Dates: start: 20171102, end: 20171105
  3. SODIUM CHLORIDE. [Concomitant]
     Active Substance: SODIUM CHLORIDE
     Indication: HYPONATRAEMIA
     Dosage: 10 ML, QID
     Route: 042
     Dates: start: 20171103
  4. TAZOPIPE [Concomitant]
     Active Substance: PIPERACILLIN SODIUM\TAZOBACTAM SODIUM
     Indication: INFECTION
     Dosage: 4.5 MG, TID
     Route: 042
     Dates: start: 20171104
  5. SYMPROIC [Suspect]
     Active Substance: NALDEMEDINE
     Dosage: 0.2 MG, QOD
     Route: 065
     Dates: start: 20171110
  6. MS CONTIN [Concomitant]
     Active Substance: MORPHINE SULFATE
     Indication: NEOPLASM MALIGNANT
     Dosage: 40 MG, BID
     Route: 048
     Dates: start: 20171102

REACTIONS (2)
  - Cytokine release syndrome [Recovered/Resolved]
  - Diarrhoea [Unknown]

NARRATIVE: CASE EVENT DATE: 20171107
